FAERS Safety Report 15285799 (Version 1)
Quarter: 2018Q3

REPORT INFORMATION
  Report Type: Spontaneous
  Country: US (occurrence: US)
  Receive Date: 20180816
  Receipt Date: 20180816
  Transmission Date: 20181010
  Serious: No
  Sender: FDA-Public Use
  Company Number: US-PERRIGO-18US004668

PATIENT
  Sex: Female
  Weight: 61.22 kg

DRUGS (1)
  1. NICOTINE POLACRILEX [Suspect]
     Active Substance: NICOTINE
     Indication: SMOKING CESSATION THERAPY
     Dosage: 2 MG, EVERY 2 HOURS, 6 TO 7 TIMES A DAY
     Route: 002
     Dates: start: 2016

REACTIONS (5)
  - Hiccups [Unknown]
  - Abdominal distension [Unknown]
  - Flatulence [Unknown]
  - Nausea [Unknown]
  - Inappropriate schedule of drug administration [Unknown]

NARRATIVE: CASE EVENT DATE: 2016
